FAERS Safety Report 5698867-2 (Version None)
Quarter: 2008Q2

REPORT INFORMATION
  Report Type: 
  Country: None (occurrence: None)
  Receive Date: 20080408
  Receipt Date: 20060712
  Transmission Date: 20081010
  Serious: No
  Sender: FDA-Public Use
  Company Number: US-BAYER-US-2006-018819

PATIENT
  Age: 45 Year

DRUGS (3)
  1. ULTRAVIST (PHARMACY BULK) [Suspect]
     Indication: COMPUTERISED TOMOGRAM ABDOMEN
     Dosage: UNIT DOSE: 100 ML
     Route: 042
     Dates: start: 20060712, end: 20060712
  2. ZOLOFT [Concomitant]
  3. SYNTHROID [Concomitant]

REACTIONS (2)
  - PRURITUS [None]
  - URTICARIA [None]
